FAERS Safety Report 6862733-7 (Version None)
Quarter: 2010Q3

REPORT INFORMATION
  Report Type: 
  Country: None (occurrence: None)
  Receive Date: 20100719
  Receipt Date: 20100702
  Transmission Date: 20110219
  Serious: Yes (Hospitalization, Disabling, Other)
  Sender: FDA-Public Use
  Company Number: 110166

PATIENT
  Age: 56 Year
  Sex: Female
  Weight: 65 kg

DRUGS (6)
  1. INNOHEP [Suspect]
     Indication: THROMBOSIS PROPHYLAXIS
     Dosage: 4500 IU (1 IN 1 D), SUBCUTANEOUS
     Route: 058
     Dates: start: 20090903, end: 20091008
  2. TARGOCID [Concomitant]
  3. ZANTAC 150 [Concomitant]
  4. ONDA (ONDANSETRON HYDROCHLORIDE) [Concomitant]
  5. LONALGAL (CODEINE PHOSPHATE, PARACETAMOL) [Concomitant]
  6. ZINACEF [Concomitant]

REACTIONS (11)
  - ALANINE AMINOTRANSFERASE ABNORMAL [None]
  - ASPARTATE AMINOTRANSFERASE ABNORMAL [None]
  - BLOOD CREATINE PHOSPHOKINASE ABNORMAL [None]
  - DEPRESSION [None]
  - DEVICE RELATED INFECTION [None]
  - GAMMA-GLUTAMYLTRANSFERASE ABNORMAL [None]
  - HAEMATOCRIT ABNORMAL [None]
  - HAEMOGLOBIN DECREASED [None]
  - PERIPHERAL NERVE LESION [None]
  - STAPHYLOCOCCAL INFECTION [None]
  - WHITE BLOOD CELL COUNT ABNORMAL [None]
